FAERS Safety Report 11504758 (Version 1)
Quarter: 2015Q3

REPORT INFORMATION
  Report Type: Spontaneous
  Country: US (occurrence: US)
  Receive Date: 20150915
  Receipt Date: 20150915
  Transmission Date: 20151125
  Serious: No
  Sender: FDA-Public Use
  Company Number: US-ROCHE-781269

PATIENT
  Sex: Female

DRUGS (4)
  1. PEGASYS [Suspect]
     Active Substance: PEGINTERFERON ALFA-2A
     Route: 058
  2. RIBASPHERE [Suspect]
     Active Substance: RIBAVIRIN
     Indication: HEPATITIS C
     Dosage: FREQUENCY: 800MG DAILY DIVIDED DOSES.
     Route: 065
  3. PEGASYS [Suspect]
     Active Substance: PEGINTERFERON ALFA-2A
     Indication: HEPATITIS C
     Route: 058
  4. PEGASYS [Suspect]
     Active Substance: PEGINTERFERON ALFA-2A
     Dosage: TOOK FULL DOSE INSTEAD OF 135MCG/WEEK.
     Route: 058

REACTIONS (6)
  - Feeling cold [Unknown]
  - Depression [Unknown]
  - Platelet count decreased [Unknown]
  - Headache [Unknown]
  - Memory impairment [Unknown]
  - Injection site bruising [Unknown]
